FAERS Safety Report 14931628 (Version 3)
Quarter: 2020Q4

REPORT INFORMATION
  Report Type: Report from Study
  Country: FR (occurrence: FR)
  Receive Date: 20180524
  Receipt Date: 20201104
  Transmission Date: 20210113
  Serious: Yes (Death, Other)
  Sender: FDA-Public Use
  Company Number: FR-JAZZ-2018-FR-008174

PATIENT

DRUGS (6)
  1. ACICLOVIR [Concomitant]
     Active Substance: ACYCLOVIR
     Indication: ANTIVIRAL PROPHYLAXIS
     Dosage: 600 MG, BID
     Route: 042
     Dates: start: 20140722
  2. CANCIDAS [Concomitant]
     Active Substance: CASPOFUNGIN ACETATE
     Indication: HYPERTHERMIA
     Dosage: 50 MG, QD
     Route: 042
     Dates: start: 20140720
  3. DEFITELIO [Suspect]
     Active Substance: DEFIBROTIDE SODIUM
     Indication: VENOOCCLUSIVE DISEASE
     Dosage: DOSING DETAILS NOT PROVIDED
     Route: 042
     Dates: start: 20140811
  4. CORDARONE [Concomitant]
     Active Substance: AMIODARONE HYDROCHLORIDE
     Indication: ATRIAL FIBRILLATION
  5. URSOLVAN [Concomitant]
     Active Substance: URSODIOL
     Indication: JAUNDICE
     Dosage: 200 MG, UNK
     Route: 048
     Dates: start: 20140722
  6. CORDARONE [Concomitant]
     Active Substance: AMIODARONE HYDROCHLORIDE
     Indication: ARRHYTHMIA
     Dosage: 2 AMPOULES, UNK
     Route: 042
     Dates: start: 20140726

REACTIONS (2)
  - Septic shock [Fatal]
  - Acute graft versus host disease [Unknown]

NARRATIVE: CASE EVENT DATE: 20140814
